FAERS Safety Report 6110152-3 (Version None)
Quarter: 2009Q1

REPORT INFORMATION
  Report Type: 
  Country: None (occurrence: None)
  Receive Date: 20090306
  Receipt Date: 20090306
  Transmission Date: 20090719
  Serious: Yes (Disabling, Other)
  Sender: FDA-Public Use
  Company Number: None

PATIENT
  Age: 79 Year
  Sex: Male
  Weight: 74.8435 kg

DRUGS (1)
  1. ACULAR [Suspect]
     Indication: RETINAL OEDEMA
     Dosage: DROP ON RIGHT EYE FOUR TIMES A DAY
     Dates: start: 20080605, end: 20090115

REACTIONS (3)
  - CORNEAL DISORDER [None]
  - GLAUCOMA [None]
  - VISUAL IMPAIRMENT [None]
